FAERS Safety Report 12227801 (Version 2)
Quarter: 2017Q1

REPORT INFORMATION
  Report Type: Report from Study
  Country: US (occurrence: US)
  Receive Date: 20160401
  Receipt Date: 20170323
  Transmission Date: 20170428
  Serious: No
  Sender: FDA-Public Use
  Company Number: PHHY2014US072345

PATIENT
  Age: 39 Year
  Sex: Female

DRUGS (1)
  1. GILENYA [Suspect]
     Active Substance: FINGOLIMOD HYDROCHLORIDE
     Indication: MULTIPLE SCLEROSIS
     Route: 048

REACTIONS (8)
  - Lymphocyte count decreased [Unknown]
  - Headache [Not Recovered/Not Resolved]
  - Neutrophil count increased [Unknown]
  - Rhinitis allergic [Not Recovered/Not Resolved]
  - Blood alkaline phosphatase increased [Unknown]
  - Tinnitus [Not Recovered/Not Resolved]
  - Hypertension [Not Recovered/Not Resolved]
  - Onychomycosis [Not Recovered/Not Resolved]

NARRATIVE: CASE EVENT DATE: 20130719
